FAERS Safety Report 14832375 (Version 2)
Quarter: 2018Q2

REPORT INFORMATION
  Report Type: Spontaneous
  Country: US (occurrence: US)
  Receive Date: 20180501
  Receipt Date: 20180508
  Transmission Date: 20180711
  Serious: Yes (Hospitalization, Other)
  Sender: FDA-Public Use
  Company Number: US-GLAXOSMITHKLINE-US2018074216

PATIENT

DRUGS (1)
  1. NICORETTE [Suspect]
     Active Substance: NICOTINE
     Indication: SMOKING CESSATION THERAPY
     Dosage: UNK

REACTIONS (8)
  - Tooth loss [Unknown]
  - Tooth abscess [Unknown]
  - Product quality issue [Unknown]
  - Blood pressure decreased [Unknown]
  - Headache [Unknown]
  - Anxiety [Unknown]
  - Nicotine dependence [Unknown]
  - Pain [Unknown]
